FAERS Safety Report 6371158-2 (Version None)
Quarter: 2009Q3

REPORT INFORMATION
  Report Type: 
  Country: None (occurrence: None)
  Receive Date: 20090923
  Receipt Date: 20090915
  Transmission Date: 20100115
  Serious: Yes (Hospitalization, Other)
  Sender: FDA-Public Use
  Company Number: JP-MERCK-0908USA00665

PATIENT
  Age: 76 Year
  Sex: Female
  Weight: 48 kg

DRUGS (7)
  1. HYZAAR [Suspect]
     Indication: HYPERTENSION
     Route: 048
     Dates: start: 20081101, end: 20090707
  2. ADALAT CC [Concomitant]
     Indication: HYPERTENSION
     Route: 048
     Dates: start: 20070330
  3. GASTER D [Concomitant]
     Indication: PROPHYLAXIS AGAINST GASTROINTESTINAL ULCER
     Route: 048
     Dates: start: 19980401
  4. SINLESTAL [Concomitant]
     Indication: HYPERLIPIDAEMIA
     Route: 048
     Dates: start: 19990801
  5. PREDNISOLONE [Concomitant]
     Indication: SYSTEMIC LUPUS ERYTHEMATOSUS
     Route: 048
     Dates: start: 20030704
  6. ZOCOR [Concomitant]
     Indication: HYPERLIPIDAEMIA
     Route: 048
     Dates: start: 19990401
  7. AMINO ACIDS (UNSPECIFIED) AND CARBOHYDRATES (UNSPECIFIED) AND ELECTROL [Concomitant]
     Indication: DECREASED APPETITE
     Route: 048
     Dates: start: 20090613, end: 20090617

REACTIONS (8)
  - CUTANEOUS LUPUS ERYTHEMATOSUS [None]
  - INTERSTITIAL LUNG DISEASE [None]
  - MUSCULOSKELETAL STIFFNESS [None]
  - PHOTOSENSITIVITY REACTION [None]
  - PROTEIN URINE PRESENT [None]
  - PYREXIA [None]
  - RHEUMATOID FACTOR [None]
  - SYSTEMIC LUPUS ERYTHEMATOSUS [None]
